FAERS Safety Report 5487855-7 (Version None)
Quarter: 2007Q3

REPORT INFORMATION
  Report Type: 
  Country: None (occurrence: None)
  Receive Date: 20070925
  Receipt Date: 20070717
  Transmission Date: 20080115
  Serious: No
  Sender: FDA-Public Use
  Company Number: 2007US001331

PATIENT
  Age: 70 Year
  Sex: Female

DRUGS (4)
  1. VESICARE [Suspect]
     Indication: POLLAKIURIA
     Dosage: 5 MG, IUD/QD, ORAL
     Route: 048
  2. DIOVAN [Concomitant]
  3. SIMVASTATIN [Concomitant]
  4. VERAPAMIL (VERAPAMIL HYDROCHLORIDE) [Concomitant]

REACTIONS (1)
  - ECZEMA [None]
